FAERS Safety Report 17751140 (Version 1)
Quarter: 2020Q2

REPORT INFORMATION
  Report Type: Spontaneous
  Country: FR (occurrence: FR)
  Receive Date: 20200506
  Receipt Date: 20200506
  Transmission Date: 20200714
  Serious: Yes (Hospitalization)
  Sender: FDA-Public Use
  Company Number: FR-PFIZER INC-2020178124

PATIENT
  Age: 37 Year
  Sex: Male
  Weight: 62 kg

DRUGS (1)
  1. IBUPROFEN. [Suspect]
     Active Substance: IBUPROFEN
     Indication: PAIN
     Dosage: UNK, UNSPECIFIED
     Route: 048
     Dates: start: 201701, end: 201701

REACTIONS (3)
  - Peritonsillar abscess [Recovered/Resolved]
  - Disease recurrence [Recovered/Resolved]
  - Streptococcal sepsis [Recovered/Resolved]

NARRATIVE: CASE EVENT DATE: 20170104
